FAERS Safety Report 13043010 (Version 4)
Quarter: 2018Q3

REPORT INFORMATION
  Report Type: Spontaneous
  Country: DE (occurrence: DE)
  Receive Date: 20161219
  Receipt Date: 20180803
  Transmission Date: 20181010
  Serious: Yes (Death, Hospitalization, Other)
  Sender: FDA-Public Use
  Company Number: DE-MYLANLABS-2016M1056142

PATIENT
  Age: 16 Year
  Sex: Male
  Weight: 65 kg

DRUGS (4)
  1. RISPERIDONE. [Suspect]
     Active Substance: RISPERIDONE
     Indication: PRODUCT USED FOR UNKNOWN INDICATION
     Dosage: UNK
  2. OLANZAPINE. [Suspect]
     Active Substance: OLANZAPINE
     Indication: PRODUCT USED FOR UNKNOWN INDICATION
     Dosage: UNK
  3. CLOZAPINE. [Suspect]
     Active Substance: CLOZAPINE
     Indication: PSYCHOTIC DISORDER
     Dosage: UNK
  4. CLOZAPINE. [Suspect]
     Active Substance: CLOZAPINE
     Indication: MITRAL VALVE PROLAPSE
     Dosage: 500 MG, QD
     Route: 065

REACTIONS (11)
  - Nausea [Fatal]
  - C-reactive protein increased [Unknown]
  - Sinus tachycardia [Fatal]
  - Regurgitation [Fatal]
  - Cardiomyopathy [Fatal]
  - Hypertension [Fatal]
  - Differential white blood cell count abnormal [Unknown]
  - Withdrawal syndrome [Fatal]
  - Vomiting [Fatal]
  - Substance use [Fatal]
  - Eosinophilia [Unknown]
